FAERS Safety Report 4959759-7 (Version None)
Quarter: 2006Q1

REPORT INFORMATION
  Report Type: 
  Country: None (occurrence: None)
  Receive Date: 20060324
  Receipt Date: 20060313
  Transmission Date: 20060701
  Serious: Yes (Other)
  Sender: FDA-Public Use
  Company Number: 2006035480

PATIENT
  Age: 18 Year
  Sex: Female
  Weight: 62.5964 kg

DRUGS (3)
  1. DEPO-PROVERA [Suspect]
     Indication: CONTRACEPTION
     Dosage: SEE IMAGE
     Dates: start: 20030601, end: 20030601
  2. DEPO-PROVERA [Suspect]
     Indication: CONTRACEPTION
     Dosage: SEE IMAGE
     Dates: start: 20060313, end: 20060313
  3. CAFFEINE (CAFFEINE) [Suspect]
     Indication: ILL-DEFINED DISORDER

REACTIONS (3)
  - DRUG ADMINISTRATION ERROR [None]
  - INCORRECT DOSE ADMINISTERED [None]
  - SUPRAVENTRICULAR TACHYCARDIA [None]
